FAERS Safety Report 8506059 (Version 2)
Quarter: 2012Q4

REPORT INFORMATION
  Report Type: Spontaneous
  Country: US (occurrence: None)
  Receive Date: 20120405
  Receipt Date: 20120814
  Transmission Date: 20130627
  Serious: Yes (Other)
  Sender: FDA-Public Use
  Company Number: 2012S1000368

PATIENT
  Age: 62 Year
  Sex: Male

DRUGS (6)
  1. LIVALO [Suspect]
     Dosage: 0.5 DF;QX;PO, 2 MG;1X;PO
     Route: 048
     Dates: end: 20120317
  2. LIVALO [Suspect]
     Dosage: 0.5 DF;QX;PO, 2 MG;1X;PO
     Route: 048
     Dates: start: 201201
  3. BYSTOLIC [Concomitant]
  4. DIOVAN [Concomitant]
  5. CELEBREX [Concomitant]
  6. ZOLOFT [Concomitant]

REACTIONS (9)
  - PAIN [None]
  - SWOLLEN TONGUE [None]
  - DRUG TOLERANCE [None]
  - WRONG TECHNIQUE IN DRUG USAGE PROCESS [None]
  - DRY MOUTH [None]
  - OEDEMA PERIPHERAL [None]
  - INCONTINENCE [None]
  - DRUG INTERACTION [None]
  - PAIN IN EXTREMITY [None]
